FAERS Safety Report 20592716 (Version 2)
Quarter: 2022Q1

REPORT INFORMATION
  Report Type: Spontaneous
  Country: AE (occurrence: AE)
  Receive Date: 20220314
  Receipt Date: 20220323
  Transmission Date: 20220423
  Serious: Yes (Hospitalization, Other)
  Sender: FDA-Public Use
  Company Number: AE-SUN PHARMACEUTICAL INDUSTRIES LTD-2022R1-329575

PATIENT
  Age: 27 Year
  Sex: Male

DRUGS (3)
  1. TESTOSTERONE [Suspect]
     Active Substance: TESTOSTERONE
     Indication: Supplementation therapy
     Dosage: UNK
     Route: 048
  2. DROMOSTANOLONE [Suspect]
     Active Substance: DROMOSTANOLONE
     Indication: Supplementation therapy
     Dosage: UNK
     Route: 048
  3. STANOZOLOL [Suspect]
     Active Substance: STANOZOLOL
     Indication: Supplementation therapy
     Dosage: UNK
     Route: 048

REACTIONS (3)
  - Drug-induced liver injury [Recovered/Resolved]
  - Hyperbilirubinaemia [Recovering/Resolving]
  - Nephropathy [Recovering/Resolving]
